FAERS Safety Report 16445873 (Version 1)
Quarter: 2019Q2

REPORT INFORMATION
  Report Type: Other
  Country: GB (occurrence: GB)
  Receive Date: 20190618
  Receipt Date: 20190618
  Transmission Date: 20190711
  Serious: Yes (Hospitalization, Other)
  Sender: FDA-Public Use
  Company Number: GB-GLENMARK PHARMACEUTICALS-2019GMK041696

PATIENT

DRUGS (1)
  1. NEBIVOLOL. [Suspect]
     Active Substance: NEBIVOLOL
     Indication: ATRIAL TACHYCARDIA
     Dosage: 2.5 DF, UNK
     Route: 048
     Dates: start: 20190201

REACTIONS (12)
  - Burning sensation [Recovering/Resolving]
  - Peripheral coldness [Recovering/Resolving]
  - Tremor [Recovering/Resolving]
  - Ear discomfort [Recovering/Resolving]
  - Head discomfort [Recovering/Resolving]
  - Abnormal weight gain [Not Recovered/Not Resolved]
  - Angina pectoris [Recovering/Resolving]
  - Headache [Unknown]
  - Arrhythmia [Recovering/Resolving]
  - Dyspnoea [Recovering/Resolving]
  - Dizziness [Recovering/Resolving]
  - Anxiety [Recovering/Resolving]
